FAERS Safety Report 7256060-6 (Version None)
Quarter: 2011Q1

REPORT INFORMATION
  Report Type: 
  Country: None (occurrence: None)
  Receive Date: 20110129
  Receipt Date: 20100511
  Transmission Date: 20110831
  Serious: No
  Sender: FDA-Public Use
  Company Number: US-ABBOTT-10P-163-0643686-00

PATIENT
  Age: 45 Year
  Sex: Female

DRUGS (3)
  1. TUMS [Concomitant]
     Indication: ABDOMINAL DISCOMFORT
  2. HUMIRA [Suspect]
     Indication: PSORIASIS
     Dates: start: 20100323, end: 20100330
  3. TYLENOL ALLERGY SINUS [Concomitant]
     Indication: HYPERSENSITIVITY

REACTIONS (1)
  - PNEUMONIA [None]
